FAERS Safety Report 17861292 (Version 4)
Quarter: 2022Q2

REPORT INFORMATION
  Report Type: Report from Study
  Country: US (occurrence: US)
  Receive Date: 20200604
  Receipt Date: 20220513
  Transmission Date: 20220721
  Serious: No
  Sender: FDA-Public Use
  Company Number: US-HARMONY BIOSCIENCES-2020HMY00225

PATIENT
  Sex: Male
  Weight: 86.168 kg

DRUGS (18)
  1. WAKIX [Suspect]
     Active Substance: PITOLISANT HYDROCHLORIDE
     Indication: Narcolepsy
     Dosage: UNK
     Route: 048
     Dates: start: 20200229, end: 2020
  2. WAKIX [Suspect]
     Active Substance: PITOLISANT HYDROCHLORIDE
     Dosage: 1 UNK
     Dates: start: 2020, end: 2020
  3. WAKIX [Suspect]
     Active Substance: PITOLISANT HYDROCHLORIDE
     Dosage: 2 UNK
     Dates: start: 2020, end: 2020
  4. WAKIX [Suspect]
     Active Substance: PITOLISANT HYDROCHLORIDE
     Indication: Narcolepsy
     Dosage: 35.6 MG, 1X/DAY
     Route: 048
     Dates: start: 2020, end: 202003
  5. WAKIX [Suspect]
     Active Substance: PITOLISANT HYDROCHLORIDE
     Dosage: 17.8 MG, 1X/DAY
     Route: 048
     Dates: start: 2020, end: 20200402
  6. WAKIX [Suspect]
     Active Substance: PITOLISANT HYDROCHLORIDE
     Dosage: 35.6 MG, 1X/DAY
     Route: 048
     Dates: start: 20200403, end: 2020
  7. WAKIX [Suspect]
     Active Substance: PITOLISANT HYDROCHLORIDE
     Dosage: 17.8 MG, 1X/DAY
     Route: 048
     Dates: start: 2020
  8. WAKIX [Suspect]
     Active Substance: PITOLISANT HYDROCHLORIDE
     Dosage: 17.8 MG
     Dates: start: 2020, end: 2020
  9. WAKIX [Suspect]
     Active Substance: PITOLISANT HYDROCHLORIDE
     Dosage: 26.7 MG
     Dates: start: 2020, end: 2020
  10. WAKIX [Suspect]
     Active Substance: PITOLISANT HYDROCHLORIDE
     Dosage: 35.6 MG
     Dates: start: 2020
  11. WAKIX [Suspect]
     Active Substance: PITOLISANT HYDROCHLORIDE
     Dosage: ALTERNATED BETWEEN 17.8 MG AND 35.6 MG
     Dates: start: 2020, end: 2020
  12. WAKIX [Suspect]
     Active Substance: PITOLISANT HYDROCHLORIDE
     Dosage: TAPERING OFF OVER 2 WEEKS
     Dates: start: 20200820, end: 2020
  13. WAKIX [Suspect]
     Active Substance: PITOLISANT HYDROCHLORIDE
     Dosage: NOW GOING BACK ON
     Dates: start: 202009
  14. XYREM [Suspect]
     Active Substance: SODIUM OXYBATE
     Dosage: UNK
  15. LAMICTAL [Concomitant]
     Active Substance: LAMOTRIGINE
  16. LITHIUM [Concomitant]
     Active Substance: LITHIUM
  17. LEVOTHYROXINE [Concomitant]
     Active Substance: LEVOTHYROXINE
  18. TRINTELLIX [Concomitant]
     Active Substance: VORTIOXETINE HYDROBROMIDE

REACTIONS (12)
  - Tremor [Recovering/Resolving]
  - Feeling cold [Unknown]
  - Performance status decreased [Unknown]
  - Vomiting [Recovered/Resolved]
  - Somnolence [Unknown]
  - Initial insomnia [Recovered/Resolved]
  - Abnormal dreams [Not Recovered/Not Resolved]
  - Nightmare [Not Recovered/Not Resolved]
  - Poor quality sleep [Not Recovered/Not Resolved]
  - Nausea [Not Recovered/Not Resolved]
  - Pruritus [Not Recovered/Not Resolved]
  - Therapy interrupted [Recovered/Resolved]

NARRATIVE: CASE EVENT DATE: 20200101
